FAERS Safety Report 24710182 (Version 1)
Quarter: 2024Q4

REPORT INFORMATION
  Report Type: Spontaneous
  Country: US (occurrence: US)
  Receive Date: 20241209
  Receipt Date: 20241209
  Transmission Date: 20250115
  Serious: No
  Sender: GLENMARK
  Company Number: US-GLENMARK PHARMACEUTICALS-2024GMK091944

PATIENT

DRUGS (1)
  1. OMEPRAZOLE [Suspect]
     Active Substance: OMEPRAZOLE
     Indication: Gastrooesophageal reflux disease
     Dosage: 20 MILLIGRAM ONCE DAILY
     Route: 048
     Dates: start: 2022

REACTIONS (4)
  - Product use issue [Unknown]
  - Drug ineffective [Unknown]
  - Product container seal issue [Unknown]
  - Product quality issue [Unknown]
